FAERS Safety Report 7683548-6 (Version None)
Quarter: 2011Q3

REPORT INFORMATION
  Report Type: 
  Country: None (occurrence: None)
  Receive Date: 20110815
  Receipt Date: 20110808
  Transmission Date: 20111222
  Serious: Yes (Hospitalization)
  Sender: FDA-Public Use
  Company Number: US-TYCO HEALTHCARE/MALLINCKRODT-T201101551

PATIENT
  Sex: Female

DRUGS (4)
  1. ALL OTHER THERAPEUTIC PRODUCTS [Suspect]
  2. METHADOSE [Suspect]
     Indication: DRUG DEPENDENCE
     Dosage: 690 MG, UNK
     Dates: start: 20011201
  3. METHADOSE [Suspect]
     Dosage: 215 MG, UNK
     Dates: start: 20010101
  4. METHADOSE [Suspect]
     Dosage: 1050 MG

REACTIONS (4)
  - FALL [None]
  - OVERDOSE [None]
  - HEAD INJURY [None]
  - ROAD TRAFFIC ACCIDENT [None]
